FAERS Safety Report 13430021 (Version 1)
Quarter: 2017Q2

REPORT INFORMATION
  Report Type: Spontaneous
  Country: US (occurrence: US)
  Receive Date: 20170412
  Receipt Date: 20170412
  Transmission Date: 20170830
  Serious: Yes (Other)
  Sender: FDA-Public Use
  Company Number: US-TEVA-732059ACC

PATIENT
  Sex: Male

DRUGS (1)
  1. CARBIDOPA AND LEVODOPA [Suspect]
     Active Substance: CARBIDOPA\LEVODOPA
     Indication: PARKINSON^S DISEASE
     Dosage: STRENGTH: CARBIDOPA 25 MG + LEVODOPA 250 MG

REACTIONS (3)
  - Sepsis [Recovering/Resolving]
  - Drug ineffective [Unknown]
  - Product substitution issue [Unknown]
